FAERS Safety Report 10044078 (Version 1)
Quarter: 2014Q1

REPORT INFORMATION
  Report Type: Spontaneous
  Country: US (occurrence: US)
  Receive Date: 20140328
  Receipt Date: 20140328
  Transmission Date: 20141002
  Serious: No
  Sender: FDA-Public Use
  Company Number: US-MYLANLABS-2013S1025627

PATIENT
  Age: 64 Year
  Sex: Female
  Weight: 70.31 kg

DRUGS (12)
  1. EMSAM (SELEGILINE TRANSDERMAL SYSTEM) [Suspect]
     Indication: DEPRESSION
     Route: 062
     Dates: start: 201304
  2. LIDODERM [Concomitant]
     Route: 062
  3. OXYCODONE [Concomitant]
     Dosage: 5MG Q4-6HOURS PRN
     Route: 048
  4. LORAZEPAM [Concomitant]
     Route: 048
  5. LORAZEPAM [Concomitant]
     Dosage: QHS
     Route: 048
  6. METOPROLOL [Concomitant]
     Route: 048
     Dates: start: 20131021
  7. SIMVASTATIN [Concomitant]
     Route: 048
  8. PRILOSEC [Concomitant]
  9. BISACODYL [Concomitant]
  10. VITAMIN B12 [Concomitant]
  11. VITAMIN D [Concomitant]
  12. ASPIRIN [Concomitant]

REACTIONS (3)
  - Tachycardia [Not Recovered/Not Resolved]
  - Application site pruritus [Not Recovered/Not Resolved]
  - Application site discolouration [Not Recovered/Not Resolved]
